FAERS Safety Report 26132326 (Version 1)
Quarter: 2025Q4

REPORT INFORMATION
  Report Type: Spontaneous
  Country: US (occurrence: US)
  Receive Date: 20251208
  Receipt Date: 20251208
  Transmission Date: 20260118
  Serious: No
  Sender: BRISTOL-MYERS SQUIBB COMPANY
  Company Number: US-BRISTOL-MYERS SQUIBB COMPANY-2024-200463

PATIENT
  Age: 64 Year
  Sex: Female
  Weight: 98.6 kg

DRUGS (2)
  1. ORENCIA [Suspect]
     Active Substance: ABATACEPT
     Indication: Rheumatoid arthritis
     Route: 058
     Dates: start: 202307
  2. ORENCIA [Suspect]
     Active Substance: ABATACEPT
     Dosage: CODE UNIT: 125 MG/ML
     Route: 058
     Dates: start: 202307

REACTIONS (6)
  - Product contamination physical [Unknown]
  - Device operational issue [Unknown]
  - Device delivery system issue [Unknown]
  - Accidental exposure to product [Unknown]
  - Exposure via skin contact [Unknown]
  - Injury associated with device [Unknown]

NARRATIVE: CASE EVENT DATE: 20251201
